FAERS Safety Report 22930184 (Version 3)
Quarter: 2025Q4

REPORT INFORMATION
  Report Type: Spontaneous
  Country: AU (occurrence: AU)
  Receive Date: 20230911
  Receipt Date: 20251114
  Transmission Date: 20260117
  Serious: Yes (Other)
  Sender: RANBAXY
  Company Number: AU-SUN PHARMACEUTICAL INDUSTRIES LTD-2023R1-404633

PATIENT
  Sex: Male

DRUGS (1)
  1. SONIDEGIB [Suspect]
     Active Substance: SONIDEGIB
     Indication: Metastases to lung
     Dosage: 200 MILLIGRAM, QD AT LEAST 1 HOUR BEFORE OR AFTER FOOD
     Route: 065

REACTIONS (5)
  - Disease progression [Unknown]
  - Blood creatine phosphokinase increased [Recovered/Resolved]
  - Dysgeusia [Recovered/Resolved]
  - Alopecia [Unknown]
  - Muscle spasms [Recovered/Resolved]
